FAERS Safety Report 8895527 (Version 1)
Quarter: 2012Q4

REPORT INFORMATION
  Report Type: 
  Country: US (occurrence: US)
  Receive Date: 20121108
  Receipt Date: 20121108
  Transmission Date: 20130627
  Serious: Yes (Other)
  Sender: FDA-Public Use
  Company Number: US-GLAXOSMITHKLINE-A0834038A

PATIENT
  Sex: Male

DRUGS (1)
  1. AVANDIA [Suspect]
     Indication: DIABETES MELLITUS
     Route: 048
     Dates: start: 2000, end: 2003

REACTIONS (4)
  - Anaemia [Not Recovered/Not Resolved]
  - Cataract [Unknown]
  - Labile blood pressure [Unknown]
  - Visual impairment [Unknown]
